FAERS Safety Report 5281476-7 (Version None)
Quarter: 2007Q1

REPORT INFORMATION
  Report Type: 
  Country: None (occurrence: None)
  Receive Date: 20070330
  Receipt Date: 20070319
  Transmission Date: 20070707
  Serious: Yes (Other)
  Sender: FDA-Public Use
  Company Number: PHBS2007JP04348

PATIENT
  Age: 11 Year
  Sex: Male

DRUGS (4)
  1. CYCLOSPORINE [Suspect]
     Indication: RENAL TRANSPLANT
     Route: 048
  2. METHYLPREDNISOLONE 16MG TAB [Suspect]
     Indication: RENAL TRANSPLANT
     Route: 065
  3. MIZORIBINE [Suspect]
     Indication: RENAL TRANSPLANT
     Route: 065
  4. NEORAL [Suspect]
     Indication: RENAL TRANSPLANT
     Route: 065

REACTIONS (1)
  - LEUKOCYTOSIS [None]
